FAERS Safety Report 5057280-1 (Version None)
Quarter: 2006Q3

REPORT INFORMATION
  Report Type: 
  Country: None (occurrence: None)
  Receive Date: 20060721
  Receipt Date: 20050714
  Transmission Date: 20061208
  Serious: No
  Sender: FDA-Public Use
  Company Number: 2005-01090

PATIENT
  Age: 53 Year
  Sex: Female

DRUGS (7)
  1. AVANDIA [Suspect]
     Dosage: 2MG PER DAY
     Route: 048
     Dates: start: 20050317
  2. METFORMIN HYDROCHLORIDE [Suspect]
     Dosage: 1000MG PER DAY
     Route: 048
     Dates: start: 20050317, end: 20050322
  3. GLUCOTROL XL [Concomitant]
     Route: 065
  4. LANTUS [Concomitant]
     Route: 065
  5. PLAQUENIL [Concomitant]
     Route: 065
  6. MONOPRIL [Concomitant]
     Route: 065
  7. INDOCIN [Concomitant]
     Route: 065

REACTIONS (3)
  - DYSPNOEA [None]
  - HYPERSENSITIVITY [None]
  - RASH GENERALISED [None]
